FAERS Safety Report 16246044 (Version 2)
Quarter: 2019Q2

REPORT INFORMATION
  Report Type: Report from Study
  Country: US (occurrence: US)
  Receive Date: 20190426
  Receipt Date: 20190513
  Transmission Date: 20190711
  Serious: Yes (Hospitalization)
  Sender: FDA-Public Use
  Company Number: US-ACTELION-A-NJ2019-189463

PATIENT
  Sex: Male

DRUGS (14)
  1. UPTRAVI [Suspect]
     Active Substance: SELEXIPAG
     Dosage: 1000 UNK
     Route: 048
     Dates: start: 20190411
  2. FUROSEMIDE. [Concomitant]
     Active Substance: FUROSEMIDE
  3. PROGRAF [Concomitant]
     Active Substance: TACROLIMUS\TACROLIMUS ANHYDROUS
  4. ALLOPURINOL. [Concomitant]
     Active Substance: ALLOPURINOL
  5. UPTRAVI [Suspect]
     Active Substance: SELEXIPAG
     Indication: PULMONARY ARTERIAL HYPERTENSION
     Dosage: 1000 MCG, BID
     Route: 048
     Dates: end: 20190422
  6. CARVEDILOL. [Concomitant]
     Active Substance: CARVEDILOL
  7. CIALIS [Concomitant]
     Active Substance: TADALAFIL
  8. COLCHICINE. [Concomitant]
     Active Substance: COLCHICINE
  9. POTASSIUM CHLORIDE. [Concomitant]
     Active Substance: POTASSIUM CHLORIDE
  10. OPSUMIT [Suspect]
     Active Substance: MACITENTAN
     Indication: PULMONARY ARTERIAL HYPERTENSION
     Dosage: 10 MG, QD
     Route: 048
     Dates: start: 20170526
  11. MICRO [Concomitant]
  12. ADCIRCA [Concomitant]
     Active Substance: TADALAFIL
  13. METOLAZONE. [Concomitant]
     Active Substance: METOLAZONE
  14. PREDNISONE. [Concomitant]
     Active Substance: PREDNISONE

REACTIONS (6)
  - Product dose omission [Unknown]
  - Diarrhoea [Unknown]
  - Pulmonary oedema [Unknown]
  - Fluid retention [Unknown]
  - Pain in extremity [Unknown]
  - Renal disorder [Unknown]
